FAERS Safety Report 6926110-2 (Version None)
Quarter: 2010Q3

REPORT INFORMATION
  Report Type: 
  Country: None (occurrence: None)
  Receive Date: 20100816
  Receipt Date: 20100811
  Transmission Date: 20110219
  Serious: Yes (Hospitalization)
  Sender: FDA-Public Use
  Company Number: FR-BRISTOL-MYERS SQUIBB COMPANY-15236318

PATIENT
  Age: 68 Year
  Sex: Female

DRUGS (6)
  1. APROVEL TABS 300 MG [Suspect]
     Route: 048
     Dates: start: 20080101, end: 20100706
  2. SEROPLEX [Suspect]
     Route: 048
     Dates: start: 20080101, end: 20100706
  3. LYSANXIA [Concomitant]
     Dates: start: 20080101, end: 20100706
  4. DAFLON [Concomitant]
     Route: 048
     Dates: start: 20080101, end: 20100706
  5. EFFERALGAN [Concomitant]
     Route: 048
     Dates: start: 20080101, end: 20100706
  6. EFFERALGAN CODEINE [Concomitant]
     Dosage: 1 DF=1 INTAKE.
     Route: 048
     Dates: start: 20080101, end: 20100706

REACTIONS (7)
  - ACUTE PRERENAL FAILURE [None]
  - FALL [None]
  - HEPATIC STEATOSIS [None]
  - HYPERKALAEMIA [None]
  - HYPONATRAEMIA [None]
  - HYPOTHYROIDISM [None]
  - PANCREATITIS CHRONIC [None]
